FAERS Safety Report 8560186-4 (Version None)
Quarter: 2012Q2

REPORT INFORMATION
  Report Type: 
  Country: None (occurrence: None)
  Receive Date: 20120418
  Receipt Date: 20080909
  Transmission Date: 20120825
  Serious: Yes (Other)
  Sender: FDA-Public Use
  Company Number: PHEH2008US08061

PATIENT
  Sex: Female

DRUGS (3)
  1. PROVERA [Suspect]
  2. PREMARIN [Suspect]
  3. ESTRADERM [Suspect]

REACTIONS (3)
  - INJURY [None]
  - BREAST CANCER [None]
  - SURGERY [None]
